FAERS Safety Report 5383877-5 (Version None)
Quarter: 2007Q3

REPORT INFORMATION
  Report Type: 
  Country: None (occurrence: None)
  Receive Date: 20070706
  Receipt Date: 20070628
  Transmission Date: 20080115
  Serious: Yes (Death, Hospitalization)
  Sender: FDA-Public Use
  Company Number: US-JNJFOC-20070504699

PATIENT
  Age: 60 Year
  Sex: Male
  Weight: 121.7 kg

DRUGS (23)
  1. DACOGEN [Suspect]
     Indication: NON-HODGKIN'S LYMPHOMA
     Dosage: 48 MG, INTRAVENOUS
     Route: 042
     Dates: start: 20070507, end: 20070510
  2. MULTIVITAMIN [Concomitant]
  3. LEVAQUIN [Concomitant]
  4. SYNTHROID [Concomitant]
  5. PROTONIX [Concomitant]
  6. DARVOCET [Concomitant]
  7. SENOKOT [Concomitant]
  8. ASCORBIC ACID [Concomitant]
  9. AZTREONAM    (AZTREONAM) [Concomitant]
  10. CASPOFUNGIN        (CASPOFUNGIN) [Concomitant]
  11. CIPRO [Concomitant]
  12. MAGNESIUM OXIDE             (MAGNESIUM OXIDE) [Concomitant]
  13. METOPROLOL TARTRATE [Concomitant]
  14. FLAGYL [Concomitant]
  15. OCULAR LUBRICANT                   (OCUCLAR) [Concomitant]
  16. VITAMIN A [Concomitant]
  17. ZINC SULFATE                 (ZINC SULFATE) [Concomitant]
  18. ACETAMINOPHEN [Concomitant]
  19. ATIVAN [Concomitant]
  20. REGLAN [Concomitant]
  21. MORPHINE [Concomitant]
  22. BENADRYL                 (DIPHENHYDRAMINE HYDROCHLORIDE) UNSPECIFIED [Concomitant]
  23. DUONEB                 (MEDIHALER-DUO) [Concomitant]

REACTIONS (21)
  - ANAEMIA [None]
  - CARDIAC TAMPONADE [None]
  - CHEST PAIN [None]
  - CHOLECYSTITIS [None]
  - HYPOTENSION [None]
  - LIVER DISORDER [None]
  - MALNUTRITION [None]
  - MENTAL STATUS CHANGES [None]
  - PERICARDIAL EFFUSION [None]
  - PERICARDITIS [None]
  - POST PROCEDURAL COMPLICATION [None]
  - PYREXIA [None]
  - RED BLOOD CELL SCHISTOCYTES PRESENT [None]
  - RENAL FAILURE [None]
  - RENAL TUBULAR NECROSIS [None]
  - RESPIRATORY FAILURE [None]
  - RHABDOMYOLYSIS [None]
  - SKIN LESION [None]
  - THROMBOSIS [None]
  - THROMBOTIC THROMBOCYTOPENIC PURPURA [None]
  - VIRAL INFECTION [None]
